FAERS Safety Report 19919206 (Version 2)
Quarter: 2021Q4

REPORT INFORMATION
  Report Type: Report from Study
  Country: None (occurrence: IT)
  Receive Date: 20211005
  Receipt Date: 20211007
  Transmission Date: 20220303
  Serious: Yes (Death)
  Sender: FDA-Public Use
  Company Number: IT-ABBVIE-21K-083-4107112-00

PATIENT
  Age: 75 Year
  Sex: Female

DRUGS (2)
  1. CARBIDOPA\LEVODOPA [Suspect]
     Active Substance: CARBIDOPA\LEVODOPA
     Indication: Parkinson^s disease
     Dosage: PUMP SETTING: MD: 7,7+3; CR: 3,3; ED: 3?20 MG/ML 5 MG/ML
     Route: 050
     Dates: start: 20140528, end: 20211003
  2. CARBIDOPA\LEVODOPA [Suspect]
     Active Substance: CARBIDOPA\LEVODOPA

REACTIONS (1)
  - Condition aggravated [Fatal]

NARRATIVE: CASE EVENT DATE: 20210901
